FAERS Safety Report 8739425 (Version 5)
Quarter: 2013Q3

REPORT INFORMATION
  Report Type: Spontaneous
  Country: US (occurrence: US)
  Receive Date: 20120823
  Receipt Date: 20130822
  Transmission Date: 20140515
  Serious: Yes (Hospitalization, Other)
  Sender: FDA-Public Use
  Company Number: US-009507513-0210USA00005

PATIENT
  Sex: Female

DRUGS (11)
  1. FOSAMAX [Suspect]
     Indication: OSTEOPOROSIS
     Dosage: 70 MG, QW
     Route: 048
     Dates: start: 200211, end: 200912
  2. ALENDRONATE SODIUM [Suspect]
     Indication: OSTEOPOROSIS
  3. CELEXA [Concomitant]
     Indication: DEPRESSION
     Dosage: 20 MG, QD
     Dates: start: 1996, end: 2012
  4. MK-0966 [Concomitant]
  5. TYLENOL [Concomitant]
  6. THERAPY UNSPECIFIED [Concomitant]
  7. TRAZODONE HYDROCHLORIDE [Concomitant]
     Indication: SLEEP DISORDER
     Dosage: 25 MG, QPM
     Dates: start: 1993, end: 2012
  8. CLINDAMYCIN [Concomitant]
     Indication: DENTAL CLEANING
     Dosage: UNK
     Dates: start: 1997, end: 2009
  9. VITAMINS (UNSPECIFIED) [Concomitant]
     Dosage: UNK, QD
     Dates: start: 1998, end: 2012
  10. CALCIUM (UNSPECIFIED) [Concomitant]
     Dosage: UNK, QD
     Dates: start: 2003, end: 2012
  11. CORTICOSTEROIDS (UNSPECIFIED) [Concomitant]
     Dosage: UNK
     Dates: start: 1994, end: 2009

REACTIONS (29)
  - Femur fracture [Unknown]
  - Open reduction of fracture [Unknown]
  - Femur fracture [Unknown]
  - Femur fracture [Unknown]
  - X-ray [Unknown]
  - Impaired healing [Unknown]
  - Joint stiffness [Recovered/Resolved]
  - Low turnover osteopathy [Unknown]
  - Fall [Unknown]
  - Spinal column stenosis [Unknown]
  - Urinary tract infection [Unknown]
  - Spinal osteoarthritis [Unknown]
  - Arthropathy [Unknown]
  - Arthropathy [Unknown]
  - Bone disorder [Unknown]
  - Pubis fracture [Unknown]
  - Osteopenia [Unknown]
  - Joint dislocation [Not Recovered/Not Resolved]
  - Kyphosis [Unknown]
  - Arthritis [Unknown]
  - Fibula fracture [Unknown]
  - Swelling [Unknown]
  - Fracture malunion [Unknown]
  - Device issue [Unknown]
  - Fracture delayed union [Unknown]
  - Pain in extremity [Unknown]
  - Arthralgia [Recovered/Resolved]
  - Arthralgia [Unknown]
  - Pain in extremity [Unknown]
